FAERS Safety Report 6734297-X (Version None)
Quarter: 2010Q2

REPORT INFORMATION
  Report Type: 
  Country: None (occurrence: None)
  Receive Date: 20100520
  Receipt Date: 20100513
  Transmission Date: 20101027
  Serious: Yes (Other)
  Sender: FDA-Public Use
  Company Number: US-ALLERGAN-1006320US

PATIENT
  Age: 60 Year
  Sex: Male

DRUGS (5)
  1. OZURDEX [Suspect]
     Indication: RETINAL VEIN OCCLUSION
     Dosage: UNK
     Dates: start: 20100104, end: 20100104
  2. VIGAMOX [Concomitant]
     Indication: RETINAL VEIN OCCLUSION
     Dosage: 1 GTT, QID
     Route: 047
  3. TOPROL-XL [Concomitant]
     Indication: HYPERTENSION
  4. ZETIA [Concomitant]
     Indication: HYPERCHOLESTEROLAEMIA
  5. ASPIRIN [Concomitant]
     Indication: CORONARY ARTERY DISEASE

REACTIONS (1)
  - ENDOPHTHALMITIS [None]
